FAERS Safety Report 10111077 (Version 2)
Quarter: 2014Q4

REPORT INFORMATION
  Report Type: Spontaneous
  Country: US (occurrence: None)
  Receive Date: 20140421
  Receipt Date: 20141020
  Transmission Date: 20150528
  Serious: No
  Sender: FDA-Public Use
  Company Number: AEGR000318

PATIENT
  Age: 65 Year
  Sex: Female
  Weight: 65.8 kg

DRUGS (14)
  1. JUXTAPID [Suspect]
     Active Substance: LOMITAPIDE MESYLATE
     Indication: TYPE IIA HYPERLIPIDAEMIA
     Route: 048
     Dates: start: 20131213
  2. ASA [Concomitant]
     Active Substance: ASPIRIN
  3. PREVACID [Concomitant]
     Active Substance: LANSOPRAZOLE
  4. METOPROLOL [Concomitant]
     Active Substance: METOPROLOL
  5. RANEXA [Concomitant]
     Active Substance: RANOLAZINE
  6. GLIMEPIRIDE. [Concomitant]
     Active Substance: GLIMEPIRIDE
  7. DIOVAN [Concomitant]
     Active Substance: VALSARTAN
  8. FUROSEMIDE. [Concomitant]
     Active Substance: FUROSEMIDE
  9. NTG [Concomitant]
     Active Substance: NITROGLYCERIN
  10. KLOR-CON [Concomitant]
     Active Substance: POTASSIUM CHLORIDE
  11. JANUMET [Concomitant]
     Active Substance: METFORMIN HYDROCHLORIDE\SITAGLIPTIN PHOSPHATE
  12. SPIRONOLACTONE. [Concomitant]
     Active Substance: SPIRONOLACTONE
  13. PLAVIX [Concomitant]
     Active Substance: CLOPIDOGREL BISULFATE
  14. ANTARA [Concomitant]
     Active Substance: FENOFIBRATE

REACTIONS (1)
  - Weight decreased [None]

NARRATIVE: CASE EVENT DATE: 201312
